FAERS Safety Report 18604944 (Version 1)
Quarter: 2020Q4

REPORT INFORMATION
  Report Type: Spontaneous
  Country: US (occurrence: US)
  Receive Date: 20201211
  Receipt Date: 20201211
  Transmission Date: 20210114
  Serious: Yes (Hospitalization, Other)
  Sender: FDA-Public Use
  Company Number: US-NOVOPROD-772395

PATIENT
  Sex: Female

DRUGS (1)
  1. NOVOLOG MIX 70/30 [Suspect]
     Active Substance: INSULIN ASPART
     Indication: DIABETES MELLITUS
     Dosage: VARIES
     Route: 065
     Dates: start: 201606, end: 2017

REACTIONS (3)
  - Blood glucose increased [Recovered/Resolved]
  - Amnesia [Unknown]
  - Brain neoplasm benign [Not Recovered/Not Resolved]

NARRATIVE: CASE EVENT DATE: 2016
